FAERS Safety Report 7488208-2 (Version None)
Quarter: 2011Q2

REPORT INFORMATION
  Report Type: 
  Country: None (occurrence: None)
  Receive Date: 20110518
  Receipt Date: 20110510
  Transmission Date: 20111010
  Serious: Yes (Other)
  Sender: FDA-Public Use
  Company Number: PHHY2010BR66790

PATIENT
  Sex: Female
  Weight: 78 kg

DRUGS (27)
  1. CLONAZEPAM [Concomitant]
     Dosage: 1 MG, UNK
  2. SINEMET [Concomitant]
     Dosage: 250 MG, 0.5 TABLET
  3. PROLOPA [Concomitant]
     Indication: INSOMNIA
     Dosage: ONE FOURTH TABLET
     Dates: start: 20110501
  4. STALEVO 100 [Suspect]
     Dosage: 100 MG, UNK
     Dates: start: 20090404
  5. STALEVO 100 [Suspect]
     Dosage: 100/25/200 MG
     Dates: start: 20110501
  6. CLONAZEPAM [Concomitant]
     Dosage: 25 MG, UNK
     Dates: start: 20090404
  7. ATORVASTATIN [Concomitant]
     Dosage: 10 MG, UNK
  8. MANTIDAN [Concomitant]
     Dosage: 0.5 DF, UNK
  9. EFFEXOR XR [Concomitant]
     Dosage: 75 MG, UNK
  10. TAMARINE [Concomitant]
     Dosage: AS NEEDED
     Dates: start: 20090404
  11. STALEVO 100 [Suspect]
     Indication: PARKINSON'S DISEASE
     Dosage: 100/25/200 MG FIVE TABLET DAILY WITH 150/37.5/200MG 01 TABLET FIVE TABLETS DAILY
     Route: 048
     Dates: start: 20090101
  12. STALEVO 100 [Suspect]
     Dosage: 50 MG, UNK
     Dates: start: 20110501
  13. LUFTAL [Concomitant]
     Dosage: UNK UKN, UNK
     Dates: start: 20110501
  14. MOTILIUM [Concomitant]
     Dosage: 0.5 DF, UNK
     Dates: start: 20090404
  15. TRIMEBUTINE MALEATE [Concomitant]
     Dosage: UNK UKN, UNK
     Dates: start: 20110501
  16. STALEVO 100 [Suspect]
     Dosage: 100 MG, UNK
     Dates: start: 20090404
  17. LACTULOSE [Concomitant]
     Dosage: UNK UKN, UNK
  18. STALEVO 100 [Suspect]
     Dosage: 100/25/200 MG FOUR TIMES DAILY WITH 150/37.5/200MG 01 TABLET FOUR TIMES DAILY
  19. COMTAN [Suspect]
     Indication: PARKINSON'S DISEASE
     Dosage: UNK UKN, UNK
  20. PANTOPRAZOLE [Concomitant]
     Dosage: 20 MG, UNK
     Dates: start: 20110501
  21. STALEVO 100 [Suspect]
     Dosage: 150/37.5/200MG 01 TABLET FOUR TIMES DAILY
     Dates: start: 20090404
  22. PRAMIPEXOLE DIHYCHLLORIDE [Concomitant]
     Dosage: 2 DF, UNK
     Dates: start: 20090404
  23. CLONAZEPAM [Concomitant]
     Dosage: 0.5 MG, UNK
     Dates: start: 20090404
  24. PANTOPRAZOLE [Concomitant]
     Dosage: 20 MG, UNK
     Dates: start: 20090404
  25. PANTOPRAZOLE [Concomitant]
     Dosage: 20 MG, UNK
     Dates: start: 20110501
  26. SINEMET [Concomitant]
     Dosage: ONE FOURTH
  27. ARADOIS H [Concomitant]
     Dosage: 50/12.5MG

REACTIONS (7)
  - PSYCHOMOTOR HYPERACTIVITY [None]
  - DYSKINESIA [None]
  - DRUG INEFFECTIVE [None]
  - HYPERHIDROSIS [None]
  - CONSTIPATION [None]
  - ABDOMINAL PAIN [None]
  - PALLOR [None]
